FAERS Safety Report 13716722 (Version 1)
Quarter: 2017Q3

REPORT INFORMATION
  Report Type: Spontaneous
  Country: JP (occurrence: JP)
  Receive Date: 20170705
  Receipt Date: 20170705
  Transmission Date: 20171127
  Serious: Yes (Hospitalization)
  Sender: FDA-Public Use
  Company Number: JP-SA-2017SA118833

PATIENT
  Age: 78 Year
  Sex: Female

DRUGS (2)
  1. BCG FOR IMMUNOTHERAPY [Suspect]
     Active Substance: BACILLUS CALMETTE-GUERIN ANTIGEN, UNSPECIFIED SUBSTRAIN
     Indication: BLADDER CANCER
     Route: 043
  2. BCG FOR IMMUNOTHERAPY [Suspect]
     Active Substance: BACILLUS CALMETTE-GUERIN ANTIGEN, UNSPECIFIED SUBSTRAIN
     Indication: BLADDER CANCER
     Route: 043

REACTIONS (8)
  - Asthenia [Unknown]
  - Chronic kidney disease [Unknown]
  - Sepsis [Unknown]
  - Pyelonephritis [Unknown]
  - Disseminated Bacillus Calmette-Guerin infection [Unknown]
  - Anuria [Unknown]
  - Pyrexia [Unknown]
  - Renal impairment [Recovering/Resolving]
